FAERS Safety Report 8879508 (Version 2)
Quarter: 2012Q4

REPORT INFORMATION
  Report Type: 
  Country: BR (occurrence: BR)
  Receive Date: 20121031
  Receipt Date: 20121130
  Transmission Date: 20130627
  Serious: Yes (Disabling)
  Sender: FDA-Public Use
  Company Number: BR-ASTRAZENECA-2012SE80870

PATIENT
  Age: 34 Year
  Sex: Female

DRUGS (2)
  1. SEROQUEL XRO [Suspect]
     Route: 048
     Dates: start: 201204, end: 20121019
  2. SEROQUEL XRO [Suspect]
     Route: 048

REACTIONS (2)
  - Activities of daily living impaired [Recovered/Resolved]
  - Somnolence [Recovered/Resolved]
